FAERS Safety Report 7960286-3 (Version None)
Quarter: 2011Q4

REPORT INFORMATION
  Report Type: 
  Country: None (occurrence: None)
  Receive Date: 20111206
  Receipt Date: 20111201
  Transmission Date: 20120403
  Serious: Yes (Hospitalization)
  Sender: FDA-Public Use
  Company Number: DE-COVIDIEN/TYCO HEALTHCARE/MALLINCKRODT-T201102793

PATIENT
  Sex: Male

DRUGS (2)
  1. SODIUM CHLORIDE [Concomitant]
     Dosage: 50 ML, SINGLE
     Route: 042
     Dates: start: 20111104, end: 20111104
  2. OPTIRAY 160 [Suspect]
     Indication: COMPUTERISED TOMOGRAM
     Dosage: 100 ML, SINGLE
     Route: 042
     Dates: start: 20111104, end: 20111104

REACTIONS (1)
  - VIITH NERVE PARALYSIS [None]
